FAERS Safety Report 20672320 (Version 8)
Quarter: 2022Q4

REPORT INFORMATION
  Report Type: Other
  Country: US (occurrence: None)
  Receive Date: 20220405
  Receipt Date: 20221227
  Transmission Date: 20230112
  Serious: Yes (Hospitalization, Other)
  Sender: FDA-Public Use
  Company Number: US-ROCHE-2791128

PATIENT
  Age: 73 Year
  Sex: Female

DRUGS (8)
  1. ALECENSA [Suspect]
     Active Substance: ALECTINIB HYDROCHLORIDE
     Indication: Brain neoplasm malignant
     Dosage: TAKE 3 CAPSULE(S) BY MOUTH TWICE A DAY.?TAKE 4 CAPSULE(S) BY MOUTH TWICE A DAY TAKE WITH FOOD SWALLO
     Route: 048
  2. ALECENSA [Suspect]
     Active Substance: ALECTINIB HYDROCHLORIDE
     Indication: Lung neoplasm malignant
  3. ALECENSA [Suspect]
     Active Substance: ALECTINIB HYDROCHLORIDE
     Indication: Bronchial carcinoma
  4. ALECENSA [Suspect]
     Active Substance: ALECTINIB HYDROCHLORIDE
     Indication: Metastases to central nervous system
  5. AUGMENTIN [Concomitant]
     Active Substance: AMOXICILLIN\CLAVULANATE POTASSIUM
  6. CLINDAMYCIN [Concomitant]
     Active Substance: CLINDAMYCIN
  7. ECOTRIN [Concomitant]
     Active Substance: ASPIRIN
  8. LACTULOSE [Concomitant]
     Active Substance: LACTULOSE

REACTIONS (22)
  - Colitis [Unknown]
  - Hypertension [Unknown]
  - Cerebral disorder [Unknown]
  - Claustrophobia [Unknown]
  - Malaise [Unknown]
  - Diarrhoea [Unknown]
  - Intentional product misuse [Unknown]
  - Nervousness [Unknown]
  - Emotional distress [Unknown]
  - Constipation [Unknown]
  - Hypotension [Unknown]
  - Memory impairment [Unknown]
  - Abdominal pain upper [Unknown]
  - Neuropathy peripheral [Unknown]
  - Hypoaesthesia [Unknown]
  - Nodule [Unknown]
  - Chest discomfort [Unknown]
  - Nasopharyngitis [Unknown]
  - Chest pain [Unknown]
  - Brain neoplasm [Unknown]
  - Atrial fibrillation [Unknown]
  - Lung disorder [Unknown]
